FAERS Safety Report 14976702 (Version 1)
Quarter: 2018Q2

REPORT INFORMATION
  Report Type: Spontaneous
  Country: ES (occurrence: ES)
  Receive Date: 20180605
  Receipt Date: 20180605
  Transmission Date: 20180711
  Serious: Yes (Hospitalization)
  Sender: FDA-Public Use
  Company Number: PHHY2018ES013800

PATIENT
  Age: 26 Year
  Sex: Male

DRUGS (2)
  1. CIPROFLOXACINO [Suspect]
     Active Substance: CIPROFLOXACIN HYDROCHLORIDE
     Indication: ORCHITIS
     Dosage: UNK
     Route: 065
     Dates: start: 20161028, end: 20161102
  2. IBUPROFENO [Suspect]
     Active Substance: IBUPROFEN
     Indication: ORCHITIS
     Dosage: UNK
     Route: 065
     Dates: start: 20161028, end: 20161102

REACTIONS (3)
  - Acute kidney injury [Recovered/Resolved]
  - Vomiting [Recovered/Resolved]
  - Tubulointerstitial nephritis [Recovered/Resolved]

NARRATIVE: CASE EVENT DATE: 20161101
